FAERS Safety Report 5981528-X (Version None)
Quarter: 2008Q4

REPORT INFORMATION
  Report Type: 
  Country: None (occurrence: None)
  Receive Date: 20081202
  Receipt Date: 20081117
  Transmission Date: 20090506
  Serious: Yes (Death, Hospitalization)
  Sender: FDA-Public Use
  Company Number: KV200800286

PATIENT
  Age: 54 Year
  Sex: Female

DRUGS (4)
  1. MORPHINE SULFATE [Suspect]
     Indication: PAIN
     Dosage: 15 G, PRN, ORAL
     Route: 048
     Dates: end: 20080901
  2. UNSPECIFIED BLOOD PRESSURE MEDICATION [Concomitant]
  3. UNSPECIFIED WATER PILL [Concomitant]
  4. LUNESTA [Concomitant]

REACTIONS (2)
  - CARDIO-RESPIRATORY ARREST [None]
  - OVERDOSE [None]
